FAERS Safety Report 8378791-7 (Version None)
Quarter: 2012Q2

REPORT INFORMATION
  Report Type: 
  Country: None (occurrence: None)
  Receive Date: 20120523
  Receipt Date: 20120514
  Transmission Date: 20120825
  Serious: Yes (Other)
  Sender: FDA-Public Use
  Company Number: CA-BRISTOL-MYERS SQUIBB COMPANY-16524746

PATIENT
  Age: 71 Year
  Sex: Female

DRUGS (6)
  1. TYLENOL [Concomitant]
     Route: 048
  2. BENADRYL [Concomitant]
     Indication: PREMEDICATION
     Route: 042
  3. FLOVENT [Concomitant]
     Route: 055
  4. DECADRON [Concomitant]
     Indication: PREMEDICATION
     Route: 042
  5. TAXOL [Suspect]
     Indication: BREAST CANCER
     Dosage: 130MG; 1 DOSE ONLY.
     Route: 042
     Dates: start: 20120308, end: 20120308
  6. ZANTAC [Concomitant]
     Indication: PREMEDICATION
     Route: 042

REACTIONS (1)
  - VENTRICULAR EXTRASYSTOLES [None]
